FAERS Safety Report 4369632-3 (Version None)
Quarter: 2004Q2

REPORT INFORMATION
  Report Type: 
  Country: None (occurrence: None)
  Receive Date: 20040526
  Receipt Date: 20040323
  Transmission Date: 20050107
  Serious: Yes (Hospitalization, Other)
  Sender: FDA-Public Use
  Company Number: USA040362933

PATIENT
  Age: 27 Year
  Sex: Male

DRUGS (1)
  1. ZYPREXA [Suspect]
     Indication: SCHIZOPHRENIA
     Dosage: 20 MG DAY
     Dates: start: 20020101

REACTIONS (7)
  - DRUG INEFFECTIVE [None]
  - FEELING ABNORMAL [None]
  - GRAND MAL CONVULSION [None]
  - HEAD INJURY [None]
  - HOSPITALISATION [None]
  - ROAD TRAFFIC ACCIDENT [None]
  - SOMNOLENCE [None]
